FAERS Safety Report 7509059-6 (Version None)
Quarter: 2011Q2

REPORT INFORMATION
  Report Type: 
  Country: None (occurrence: None)
  Receive Date: 20110527
  Receipt Date: 20110524
  Transmission Date: 20111010
  Serious: Yes (Death, Other)
  Sender: FDA-Public Use
  Company Number: US-AMGEN-QUU422591

PATIENT
  Age: 83 Year
  Sex: Male
  Weight: 68.6 kg

DRUGS (11)
  1. REPAGLINIDE [Concomitant]
     Dosage: 2 MG, UNK
  2. GABAPENTIN [Concomitant]
     Dosage: 100 MG, UNK
  3. DILTIAZEM HCL [Concomitant]
     Dosage: 240 MG, UNK
  4. AMITRIPTYLINE HCL [Concomitant]
     Dosage: 50 MG, UNK
  5. GEMFIBROZIL [Concomitant]
     Dosage: 600 MG, UNK
  6. OMEPRAZOLE [Concomitant]
     Dosage: 20 MG, UNK
  7. GLIMEPIRIDE [Concomitant]
     Dosage: 2 MG, UNK
  8. NPLATE [Suspect]
     Indication: IDIOPATHIC THROMBOCYTOPENIC PURPURA
     Dosage: 2 A?G/KG, QWK
     Route: 058
     Dates: start: 20100503, end: 20100531
  9. AZACITIDINE [Concomitant]
     Dosage: 60 MG/KG, UNK
     Dates: start: 20100527, end: 20100602
  10. SIMVASTATIN [Concomitant]
     Dosage: 40 MG, UNK
  11. AMITRIPTYLINE HCL [Concomitant]
     Dosage: 50 MG, UNK

REACTIONS (2)
  - DEATH [None]
  - ARTERIAL OCCLUSIVE DISEASE [None]
